FAERS Safety Report 14772534 (Version 1)
Quarter: 2018Q2

REPORT INFORMATION
  Report Type: Report from Study
  Country: US (occurrence: US)
  Receive Date: 20180418
  Receipt Date: 20180418
  Transmission Date: 20180711
  Serious: Yes (Hospitalization)
  Sender: FDA-Public Use
  Company Number: US-BIOGEN-2018BI00556783

PATIENT
  Sex: Female

DRUGS (1)
  1. TECFIDERA [Suspect]
     Active Substance: DIMETHYL FUMARATE
     Indication: MULTIPLE SCLEROSIS
     Route: 048
     Dates: start: 201609

REACTIONS (7)
  - Pain [Unknown]
  - Pneumonia [Recovered/Resolved]
  - Pericardial effusion [Unknown]
  - Influenza [Recovered/Resolved]
  - Depression [Unknown]
  - Decreased interest [Unknown]
  - Hepatic enzyme increased [Unknown]
